FAERS Safety Report 7001197-X (Version None)
Quarter: 2010Q3

REPORT INFORMATION
  Report Type: 
  Country: None (occurrence: None)
  Receive Date: 20100920
  Receipt Date: 20100217
  Transmission Date: 20110219
  Serious: Yes (Hospitalization)
  Sender: FDA-Public Use
  Company Number: US-ASTRAZENECA-2008UW27555

PATIENT
  Age: 13456 Day
  Sex: Female
  Weight: 117.9 kg

DRUGS (7)
  1. SEROQUEL [Suspect]
     Indication: BIPOLAR I DISORDER
     Route: 048
     Dates: start: 20021210, end: 20040721
  2. SEROQUEL [Suspect]
     Indication: BIPOLAR DISORDER
     Route: 048
     Dates: start: 20021210, end: 20040721
  3. SEROQUEL [Suspect]
     Route: 048
     Dates: start: 20020326
  4. SEROQUEL [Suspect]
     Route: 048
     Dates: start: 20020326
  5. GEODON [Concomitant]
     Route: 048
     Dates: start: 20020326
  6. ZYPREXA [Concomitant]
  7. LITHIUM CARBONATE [Concomitant]
     Route: 048
     Dates: start: 20020326

REACTIONS (2)
  - CHEST PAIN [None]
  - DIABETES MELLITUS [None]
